FAERS Safety Report 18716318 (Version 1)
Quarter: 2021Q1

REPORT INFORMATION
  Report Type: Spontaneous
  Country: US (occurrence: US)
  Receive Date: 20210107
  Receipt Date: 20210107
  Transmission Date: 20210419
  Serious: Yes (Hospitalization)
  Sender: FDA-Public Use
  Company Number: None

PATIENT
  Sex: Male

DRUGS (8)
  1. CLINDAMYCIN. [Concomitant]
     Active Substance: CLINDAMYCIN
  2. LOSARTAN. [Concomitant]
     Active Substance: LOSARTAN
  3. POT CITRATE [Concomitant]
     Active Substance: POTASSIUM CITRATE
  4. FENOFIBRATE. [Concomitant]
     Active Substance: FENOFIBRATE
  5. SPRINOLACT [Concomitant]
  6. PREVDNT [Concomitant]
  7. REPATHA [Suspect]
     Active Substance: EVOLOCUMAB
     Indication: PRODUCT USED FOR UNKNOWN INDICATION
     Dosage: ?          OTHER FREQUENCY:EVERY TWO WEEKS;?
     Route: 058
     Dates: start: 20180304
  8. CARVEDILOL. [Concomitant]
     Active Substance: CARVEDILOL

REACTIONS (4)
  - Knee operation [None]
  - Spinal operation [None]
  - Endodontic procedure [None]
  - Renal surgery [None]
